FAERS Safety Report 8471195-8 (Version None)
Quarter: 2012Q2

REPORT INFORMATION
  Report Type: 
  Country: None (occurrence: None)
  Receive Date: 20120627
  Receipt Date: 20120621
  Transmission Date: 20120825
  Serious: No
  Sender: FDA-Public Use
  Company Number: DE-PFIZER INC-2012123023

PATIENT
  Age: 72 Year
  Sex: Male

DRUGS (1)
  1. ATORVASTATIN CALCIUM [Suspect]
     Dosage: 20 MG, UNK

REACTIONS (2)
  - NAUSEA [None]
  - DIZZINESS [None]
